FAERS Safety Report 5199308-4 (Version None)
Quarter: 2006Q4

REPORT INFORMATION
  Report Type: 
  Country: None (occurrence: None)
  Receive Date: 20061016
  Receipt Date: 20060619
  Transmission Date: 20070319
  Serious: No
  Sender: FDA-Public Use
  Company Number: 2006SP002479

PATIENT
  Age: 56 Year
  Sex: Female
  Weight: 102.9665 kg

DRUGS (5)
  1. LUNESTA [Suspect]
     Indication: SLEEP APNOEA SYNDROME
     Dosage: 3 MG PRN ORAL
     Route: 048
     Dates: start: 20060201
  2. ORENCIA [Concomitant]
     Indication: RHEUMATOID ARTHRITIS
     Dosage: 1X INTRAVENOUS
     Route: 042
     Dates: start: 20060601, end: 20060601
  3. ORENCIA [Concomitant]
     Indication: RHEUMATOID ARTHRITIS
     Dosage: 1X INTRAVENOUS
     Route: 042
     Dates: start: 20060601, end: 20060601
  4. ETANERCEPT [Concomitant]
  5. REQUIP [Concomitant]

REACTIONS (3)
  - HEART RATE IRREGULAR [None]
  - INSOMNIA [None]
  - PALPITATIONS [None]
